FAERS Safety Report 4488453-4 (Version None)
Quarter: 2004Q4

REPORT INFORMATION
  Report Type: 
  Country: None (occurrence: None)
  Receive Date: 20041026
  Receipt Date: 20041012
  Transmission Date: 20050328
  Serious: Yes (Hospitalization)
  Sender: FDA-Public Use
  Company Number: US_980807913

PATIENT
  Age: 65 Year
  Sex: Female
  Weight: 53 kg

DRUGS (10)
  1. HUMALOG [Suspect]
     Indication: DIABETES MELLITUS
     Dosage: 3 UG/DAY
  2. HUMULIN N [Suspect]
     Indication: DIABETES MELLITUS
     Dosage: 5 U/DAY
     Dates: end: 20010101
  3. INSULIN [Suspect]
     Indication: DIABETES MELLITUS
     Dates: end: 19380101
  4. COZAAR [Concomitant]
  5. FUROSEMIDE [Concomitant]
  6. PREMARIN [Concomitant]
  7. VERAPAMIL [Concomitant]
  8. NORTRIPTYLINE HCL [Concomitant]
  9. XANAX [Concomitant]
  10. K-DUR 10 [Concomitant]

REACTIONS (12)
  - ARTHRALGIA [None]
  - BACK PAIN [None]
  - BLOOD GLUCOSE FLUCTUATION [None]
  - DRUG INEFFECTIVE [None]
  - HYPOGLYCAEMIA UNAWARENESS [None]
  - INCOHERENT [None]
  - INFECTION [None]
  - NERVE COMPRESSION [None]
  - NEUROPATHY [None]
  - RENAL FUNCTION TEST ABNORMAL [None]
  - SPINAL MYELOGRAM ABNORMAL [None]
  - SURGERY [None]
